FAERS Safety Report 15268178 (Version 1)
Quarter: 2018Q3

REPORT INFORMATION
  Report Type: Spontaneous
  Country: GB (occurrence: GB)
  Receive Date: 20180812
  Receipt Date: 20180812
  Transmission Date: 20181010
  Serious: Yes (Hospitalization)
  Sender: FDA-Public Use
  Company Number: GB-TEVA-2018-GB-938769

PATIENT
  Age: 80 Year
  Sex: Female

DRUGS (1)
  1. LORAZEPAM. [Suspect]
     Active Substance: LORAZEPAM
     Indication: PRODUCT USED FOR UNKNOWN INDICATION
     Route: 065

REACTIONS (7)
  - Feeling abnormal [Unknown]
  - Hallucination [Unknown]
  - Drug dependence [Unknown]
  - Feeling cold [Unknown]
  - Malaise [Unknown]
  - Somnolence [Unknown]
  - Lower respiratory tract infection [Unknown]
